FAERS Safety Report 11396631 (Version 2)
Quarter: 2015Q3

REPORT INFORMATION
  Report Type: Spontaneous
  Country: DE (occurrence: DE)
  Receive Date: 20150819
  Receipt Date: 20150825
  Transmission Date: 20151125
  Serious: No
  Sender: FDA-Public Use
  Company Number: DE-009507513-1508DEU006033

PATIENT

DRUGS (1)
  1. INTERFERON [Suspect]
     Active Substance: INTERFERON
     Indication: MALIGNANT MELANOMA
     Dosage: UNK, THREE TIMES A WEEK

REACTIONS (1)
  - Postoperative abscess [Unknown]
